FAERS Safety Report 8556617-6 (Version None)
Quarter: 2012Q3

REPORT INFORMATION
  Report Type: 
  Country: None (occurrence: None)
  Receive Date: 20120801
  Receipt Date: 20120726
  Transmission Date: 20120928
  Serious: Yes (Hospitalization, Other)
  Sender: FDA-Public Use
  Company Number: PT-BRISTOL-MYERS SQUIBB COMPANY-16811143

PATIENT
  Age: 48 Year
  Sex: Male

DRUGS (2)
  1. IBUPROFEN [Concomitant]
  2. BARACLUDE [Suspect]
     Indication: HEPATITIS B
     Dates: start: 20120622

REACTIONS (2)
  - HEPATIC FAILURE [None]
  - ENCEPHALOPATHY [None]
